FAERS Safety Report 4850831-9 (Version None)
Quarter: 2005Q4

REPORT INFORMATION
  Report Type: 
  Country: None (occurrence: None)
  Receive Date: 20051208
  Receipt Date: 20051208
  Transmission Date: 20060501
  Serious: Yes (Other)
  Sender: FDA-Public Use
  Company Number: None

PATIENT
  Age: 53 Year
  Sex: Male
  Weight: 137.8935 kg

DRUGS (2)
  1. VASOTEC [Suspect]
     Indication: HYPERTENSION
  2. ALTACE [Suspect]
     Indication: CHEST PAIN

REACTIONS (2)
  - CHEST DISCOMFORT [None]
  - CHEST PAIN [None]
